FAERS Safety Report 7309905-5 (Version None)
Quarter: 2011Q1

REPORT INFORMATION
  Report Type: 
  Country: None (occurrence: None)
  Receive Date: 20110210
  Receipt Date: 20110202
  Transmission Date: 20110831
  Serious: Yes (Death, Other)
  Sender: FDA-Public Use
  Company Number: 2010SP038538

PATIENT
  Age: 43 Year
  Sex: Female
  Weight: 61.6892 kg

DRUGS (2)
  1. ALBUTEROL [Concomitant]
  2. NUVARING [Suspect]
     Indication: CONTRACEPTION
     Dosage: VAG
     Route: 067
     Dates: start: 20080911, end: 20090222

REACTIONS (6)
  - PULMONARY OEDEMA [None]
  - TENDONITIS [None]
  - RENAL ATROPHY [None]
  - SPLEEN DISORDER [None]
  - OVARIAN CYST [None]
  - PULMONARY EMBOLISM [None]
